FAERS Safety Report 7744134-2 (Version None)
Quarter: 2011Q3

REPORT INFORMATION
  Report Type: 
  Country: None (occurrence: None)
  Receive Date: 20110912
  Receipt Date: 20110831
  Transmission Date: 20111222
  Serious: Yes (Hospitalization)
  Sender: FDA-Public Use
  Company Number: US-CELGENEUS-163-21880-11090477

PATIENT
  Sex: Male

DRUGS (5)
  1. REVLIMID [Suspect]
     Dosage: 10 MILLIGRAM
     Route: 048
     Dates: start: 20090915
  2. MORPHINE SULFATE [Concomitant]
     Route: 065
  3. GABAPENTIN [Concomitant]
     Route: 065
  4. ADVIL LIQUI-GELS [Concomitant]
     Route: 065
  5. CYMBALTA [Concomitant]
     Route: 065

REACTIONS (2)
  - JAUNDICE [None]
  - WHITE BLOOD CELL COUNT DECREASED [None]
